FAERS Safety Report 17076297 (Version 1)
Quarter: 2019Q4

REPORT INFORMATION
  Report Type: Spontaneous
  Country: HK (occurrence: HK)
  Receive Date: 20191126
  Receipt Date: 20191126
  Transmission Date: 20200122
  Serious: Yes (Hospitalization, Other)
  Sender: FDA-Public Use
  Company Number: HK-SA-2019SA322726

PATIENT
  Age: 60 Year
  Sex: Female
  Weight: 52 kg

DRUGS (1)
  1. INDAPAMIDE. [Suspect]
     Active Substance: INDAPAMIDE
     Dosage: 2.5 MG, QD
     Route: 065

REACTIONS (14)
  - Hyponatraemia [Recovered/Resolved]
  - Palpitations [Recovered/Resolved]
  - Sinus rhythm [Recovered/Resolved]
  - Gait disturbance [Recovered/Resolved]
  - Electrocardiogram QT prolonged [Recovered/Resolved]
  - Electrocardiogram QRS complex prolonged [Recovered/Resolved]
  - Vision blurred [Recovered/Resolved]
  - Vomiting [Recovered/Resolved]
  - Nausea [Recovered/Resolved]
  - Condition aggravated [Recovered/Resolved]
  - Dizziness [Recovered/Resolved]
  - Headache [Recovered/Resolved]
  - Hypokalaemia [Recovered/Resolved]
  - Ventricular extrasystoles [Recovered/Resolved]
